FAERS Safety Report 23037910 (Version 1)
Quarter: 2023Q4

REPORT INFORMATION
  Report Type: Spontaneous
  Country: US (occurrence: None)
  Receive Date: 20231005
  Receipt Date: 20231005
  Transmission Date: 20240109
  Serious: Yes (Hospitalization)
  Sender: FDA-Public Use
  Company Number: None

PATIENT
  Age: 59 Year
  Sex: Male
  Weight: 44 kg

DRUGS (5)
  1. TECARTUS [Suspect]
     Active Substance: BREXUCABTAGENE AUTOLEUCEL
     Indication: Mantle cell lymphoma
     Dosage: OTHER FREQUENCY : ONCE;?
     Route: 042
     Dates: start: 20230705
  2. lacosamide (Vimpat) [Concomitant]
     Dates: start: 20230711, end: 20230804
  3. dexAMETHasone (Decadron) injection [Concomitant]
     Dates: start: 20230711, end: 20230718
  4. anakinra (Kineret) [Concomitant]
     Dates: start: 20230711, end: 20230718
  5. KEPPRA [Concomitant]
     Active Substance: LEVETIRACETAM
     Dates: start: 20230704, end: 20231005

REACTIONS (1)
  - Immune effector cell-associated neurotoxicity syndrome [None]

NARRATIVE: CASE EVENT DATE: 20230101
